FAERS Safety Report 12697861 (Version 3)
Quarter: 2016Q3

REPORT INFORMATION
  Report Type: Report from Study
  Country: JP (occurrence: JP)
  Receive Date: 20160830
  Receipt Date: 20160930
  Transmission Date: 20161109
  Serious: Yes (Death)
  Sender: FDA-Public Use
  Company Number: JP-EISAI MEDICAL RESEARCH-EC-2016-019811

PATIENT
  Age: 55 Year
  Sex: Female
  Weight: 46 kg

DRUGS (3)
  1. HALAVEN [Suspect]
     Active Substance: ERIBULIN MESYLATE
     Indication: PHYLLODES TUMOUR
     Route: 041
     Dates: start: 20150724, end: 20150724
  2. HALAVEN [Suspect]
     Active Substance: ERIBULIN MESYLATE
     Route: 041
     Dates: start: 20150821, end: 20150821
  3. HALAVEN [Suspect]
     Active Substance: ERIBULIN MESYLATE
     Route: 041
     Dates: start: 20150904, end: 20150918

REACTIONS (3)
  - Leukopenia [Recovered/Resolved]
  - Malignant neoplasm progression [Fatal]
  - Neutropenia [Recovered/Resolved]

NARRATIVE: CASE EVENT DATE: 20150731
